FAERS Safety Report 6823902-5 (Version None)
Quarter: 2010Q3

REPORT INFORMATION
  Report Type: 
  Country: None (occurrence: None)
  Receive Date: 20100708
  Receipt Date: 20060925
  Transmission Date: 20110219
  Serious: No
  Sender: FDA-Public Use
  Company Number: US-PFIZER INC-2006117775

PATIENT
  Sex: Male

DRUGS (4)
  1. CHANTIX [Suspect]
     Indication: EX-TOBACCO USER
     Dates: start: 20060924
  2. ADVAIR DISKUS 100/50 [Concomitant]
  3. PERCOCET [Concomitant]
  4. SINGULAIR [Concomitant]

REACTIONS (3)
  - DIZZINESS [None]
  - INSOMNIA [None]
  - TOBACCO WITHDRAWAL SYMPTOMS [None]
